FAERS Safety Report 16781387 (Version 2)
Quarter: 2020Q1

REPORT INFORMATION
  Report Type: Report from Study
  Country: US (occurrence: US)
  Receive Date: 20190906
  Receipt Date: 20200218
  Transmission Date: 20200409
  Serious: No
  Sender: FDA-Public Use
  Company Number: US-SA-2019SA242541

PATIENT
  Sex: Female

DRUGS (2)
  1. DUPILUMAB [Suspect]
     Active Substance: DUPILUMAB
     Dosage: 300 MG, QOW
     Route: 058
     Dates: start: 201902
  2. DUPILUMAB [Suspect]
     Active Substance: DUPILUMAB
     Indication: DERMATITIS ATOPIC
     Dosage: 600 MG, 1X
     Route: 058
     Dates: start: 201902, end: 201902

REACTIONS (10)
  - Rash macular [Not Recovered/Not Resolved]
  - Drug ineffective [Unknown]
  - Swelling of eyelid [Not Recovered/Not Resolved]
  - Rash [Not Recovered/Not Resolved]
  - Dry mouth [Unknown]
  - Eyelids pruritus [Not Recovered/Not Resolved]
  - Lip dry [Unknown]
  - Oral discomfort [Unknown]
  - Lip swelling [Unknown]
  - Skin tightness [Not Recovered/Not Resolved]

NARRATIVE: CASE EVENT DATE: 2019
